FAERS Safety Report 4298932-0 (Version None)
Quarter: 2004Q1

REPORT INFORMATION
  Report Type: 
  Country: None (occurrence: None)
  Receive Date: 20040217
  Receipt Date: 20040209
  Transmission Date: 20041129
  Serious: Yes (Hospitalization)
  Sender: FDA-Public Use
  Company Number: DEWYE567409FEB04

PATIENT
  Age: 17 Year
  Sex: Female

DRUGS (2)
  1. VENLAFAXINE HCL [Suspect]
     Dosage: 18 TABLETS (OVERDOSE AMOUNT 1050 MG), ORAL
     Route: 048
     Dates: start: 20040208, end: 20040208
  2. AMITRIPTYLINE HCL [Suspect]
     Dosage: 10 TABLETS (OVERDOSE AMOUNT 750 MG), ORAL
     Route: 048
     Dates: start: 20040208, end: 20040208

REACTIONS (2)
  - COMA [None]
  - INTENTIONAL OVERDOSE [None]
